FAERS Safety Report 5076922-8 (Version None)
Quarter: 2006Q3

REPORT INFORMATION
  Report Type: 
  Country: None (occurrence: None)
  Receive Date: 20060810
  Receipt Date: 20060620
  Transmission Date: 20061208
  Serious: No
  Sender: FDA-Public Use
  Company Number: 2006AP02910

PATIENT
  Age: 19385 Day
  Sex: Female
  Weight: 62 kg

DRUGS (4)
  1. SEROQUEL [Suspect]
     Route: 048
     Dates: start: 20060405, end: 20060501
  2. SEROQUEL [Suspect]
     Route: 048
     Dates: start: 20060501, end: 20060617
  3. EDRONAX [Concomitant]
     Dates: start: 20060126
  4. EDRONAX [Concomitant]
     Dates: start: 20060126

REACTIONS (2)
  - NEUTROPENIA [None]
  - WHITE BLOOD CELL COUNT DECREASED [None]
